FAERS Safety Report 5403920-4 (Version None)
Quarter: 2007Q3

REPORT INFORMATION
  Report Type: 
  Country: None (occurrence: None)
  Receive Date: 20070706
  Receipt Date: 20070119
  Transmission Date: 20080115
  Serious: Yes (Hospitalization)
  Sender: FDA-Public Use
  Company Number: 479428

PATIENT
  Sex: Female

DRUGS (9)
  1. CELLCEPT [Suspect]
     Indication: POLYMYOSITIS
     Dosage: 1 GRAM 2 PER DAY
     Dates: start: 20060815, end: 20061115
  2. LAXIX (FUROSEMIDE) [Concomitant]
  3. ASPIRIN [Concomitant]
  4. NEXIUM [Concomitant]
  5. CALCIUM (CALCIUM) [Concomitant]
  6. INSULIN (INSULIN) [Concomitant]
  7. ZOFRAN [Concomitant]
  8. PREDNISONE TAB [Concomitant]
  9. SERTRALIN (SERTRALINE HYDROCHLORIDE) [Concomitant]

REACTIONS (4)
  - ASTHENIA [None]
  - HAEMOGLOBIN DECREASED [None]
  - PANCYTOPENIA [None]
  - PLATELET DISORDER [None]
